FAERS Safety Report 6244997-6 (Version None)
Quarter: 2009Q2

REPORT INFORMATION
  Report Type: 
  Country: None (occurrence: None)
  Receive Date: 20090625
  Receipt Date: 20090617
  Transmission Date: 20091009
  Serious: Yes (Death, Hospitalization)
  Sender: FDA-Public Use
  Company Number: DK-ELI_LILLY_AND_COMPANY-DK200905003433

PATIENT
  Age: 80 Year
  Sex: Female

DRUGS (4)
  1. FORTEO [Suspect]
     Indication: OSTEOPOROSIS
     Dosage: 20 UG, DAILY (1/D)
     Route: 058
     Dates: start: 20090326, end: 20090401
  2. PREDNISOLONE [Concomitant]
     Indication: MYALGIA
     Dosage: 5 MG, UNK
     Dates: start: 20040609
  3. CONTALGIN [Concomitant]
     Indication: PAIN
  4. NORSPAN [Concomitant]
     Indication: PAIN
     Dosage: 10 MG, UNK

REACTIONS (1)
  - PNEUMONIA [None]
